FAERS Safety Report 12015084 (Version 1)
Quarter: 2016Q1

REPORT INFORMATION
  Report Type: Spontaneous
  Country: US (occurrence: US)
  Receive Date: 20160205
  Receipt Date: 20160205
  Transmission Date: 20160526
  Serious: No
  Sender: FDA-Public Use
  Company Number: US-AMGEN-USASP2015017090

PATIENT

DRUGS (8)
  1. CYTOXAN [Concomitant]
     Active Substance: CYCLOPHOSPHAMIDE
     Indication: INTRADUCTAL PROLIFERATIVE BREAST LESION
     Dosage: UNK
     Dates: start: 20131125
  2. ARIMIDEX [Concomitant]
     Active Substance: ANASTROZOLE
     Indication: INTRADUCTAL PROLIFERATIVE BREAST LESION
     Dosage: UNK
     Dates: start: 20121205
  3. TAXOTERE [Suspect]
     Active Substance: DOCETAXEL
     Indication: INTRADUCTAL PROLIFERATIVE BREAST LESION
     Dosage: UNK
     Route: 065
     Dates: start: 20131125
  4. NEULASTA [Suspect]
     Active Substance: PEGFILGRASTIM
     Indication: PRODUCT USED FOR UNKNOWN INDICATION
     Dosage: UNK
     Route: 065
  5. TAXOTERE [Suspect]
     Active Substance: DOCETAXEL
     Indication: INTRADUCTAL PROLIFERATIVE BREAST LESION
  6. MOTRIN [Concomitant]
     Active Substance: IBUPROFEN
     Dosage: UNK
  7. CYTOXAN [Concomitant]
     Active Substance: CYCLOPHOSPHAMIDE
     Indication: INTRADUCTAL PROLIFERATIVE BREAST LESION
  8. ARIMIDEX [Concomitant]
     Active Substance: ANASTROZOLE
     Indication: INTRADUCTAL PROLIFERATIVE BREAST LESION

REACTIONS (10)
  - Nausea [Unknown]
  - Pain in jaw [Unknown]
  - Eating disorder [Unknown]
  - Abnormal dreams [Unknown]
  - Sleep disorder [Unknown]
  - Bone pain [Unknown]
  - Ageusia [Unknown]
  - Decreased appetite [Unknown]
  - Haemoglobin decreased [Unknown]
  - Fatigue [Unknown]
